FAERS Safety Report 19884913 (Version 1)
Quarter: 2021Q3

REPORT INFORMATION
  Report Type: Spontaneous
  Country: US (occurrence: US)
  Receive Date: 20210927
  Receipt Date: 20210927
  Transmission Date: 20211014
  Serious: Yes (Hospitalization)
  Sender: FDA-Public Use
  Company Number: None

PATIENT
  Age: 47 Year
  Sex: Male
  Weight: 69.75 kg

DRUGS (9)
  1. OMEGA 3 [Concomitant]
     Active Substance: OMEGA-3 FATTY ACIDS
  2. CB DELTA 8 THE MONSTER [Suspect]
     Active Substance: .DELTA.8-TETRAHYDROCANNABINOL\HERBALS
     Indication: INSOMNIA
     Route: 060
     Dates: start: 20210926, end: 20210927
  3. VITAMIN D3 [Concomitant]
     Active Substance: CHOLECALCIFEROL
  4. OMEGA 6 [Concomitant]
  5. VIT A [Concomitant]
  6. K2 [Concomitant]
     Active Substance: JWH-018
  7. VITAMIN C [Concomitant]
     Active Substance: ASCORBIC ACID
  8. TRACE MINERALS [Concomitant]
     Active Substance: MINERALS
  9. CB DELTA 8 THE MONSTER [Suspect]
     Active Substance: .DELTA.8-TETRAHYDROCANNABINOL\HERBALS
     Indication: ARTHRALGIA
     Route: 060
     Dates: start: 20210926, end: 20210927

REACTIONS (8)
  - Gait disturbance [None]
  - Dyspnoea [None]
  - Palpitations [None]
  - Blood pressure decreased [None]
  - Dry mouth [None]
  - Loss of consciousness [None]
  - Nausea [None]
  - Hyperhidrosis [None]

NARRATIVE: CASE EVENT DATE: 20210927
